FAERS Safety Report 7342673-X (Version None)
Quarter: 2011Q1

REPORT INFORMATION
  Report Type: 
  Country: None (occurrence: None)
  Receive Date: 20110310
  Receipt Date: 20110303
  Transmission Date: 20110831
  Serious: Yes (Other)
  Sender: FDA-Public Use
  Company Number: CA-PFIZER INC-2011027123

PATIENT
  Sex: Female

DRUGS (2)
  1. ZIPRASIDONE HCL [Suspect]
     Indication: MANIA
     Dosage: 40 MG, 2X/DAY
  2. ZIPRASIDONE HCL [Suspect]
     Dosage: 60 MG, 2X/DAY

REACTIONS (1)
  - ACTIVATION SYNDROME [None]
